FAERS Safety Report 7130905-2 (Version None)
Quarter: 2010Q4

REPORT INFORMATION
  Report Type: 
  Country: None (occurrence: None)
  Receive Date: 20101101
  Receipt Date: 20100719
  Transmission Date: 20110411
  Serious: Yes (Other)
  Sender: FDA-Public Use
  Company Number: AMAG201000297

PATIENT
  Age: 78 Year
  Sex: Male
  Weight: 76.6 kg

DRUGS (4)
  1. FERAHEME [Suspect]
     Indication: IRON DEFICIENCY ANAEMIA
     Dosage: 210 MG, SINGLE INTRAVENOUS
     Route: 042
     Dates: start: 20100623, end: 20100623
  2. FLOMAX [Concomitant]
  3. HERBAL PREPARATION [Concomitant]
  4. MULTIVITAMINS (ASCORBIC ACID, ERGOCALCIFEROL, FOLIC ACID, NICOTINAMIDE [Concomitant]

REACTIONS (2)
  - FLUSHING [None]
  - HYPOTENSION [None]
